FAERS Safety Report 16155523 (Version 1)
Quarter: 2019Q2

REPORT INFORMATION
  Report Type: Spontaneous
  Country: MY (occurrence: MY)
  Receive Date: 20190404
  Receipt Date: 20190404
  Transmission Date: 20190711
  Serious: Yes (Hospitalization, Other)
  Sender: FDA-Public Use
  Company Number: MY-B.I. PHARMACEUTICALS,INC./RIDGEFIELD-2019-BI-014802

PATIENT
  Age: 65 Year
  Sex: Female

DRUGS (1)
  1. PRADAXA [Suspect]
     Active Substance: DABIGATRAN ETEXILATE MESYLATE
     Indication: ATRIAL FIBRILLATION
     Route: 065
     Dates: start: 201811

REACTIONS (4)
  - Haemorrhage intracranial [Unknown]
  - Acute kidney injury [Unknown]
  - Myocardial ischaemia [Unknown]
  - Cardiac failure [Unknown]
